FAERS Safety Report 19074555 (Version 1)
Quarter: 2021Q1

REPORT INFORMATION
  Report Type: Spontaneous
  Country: US (occurrence: US)
  Receive Date: 20210330
  Receipt Date: 20210330
  Transmission Date: 20210420
  Serious: No
  Sender: FDA-Public Use
  Company Number: US-ROCHE-2673043

PATIENT
  Sex: Female
  Weight: 40.86 kg

DRUGS (2)
  1. SONIDEGIB [Concomitant]
     Active Substance: SONIDEGIB
  2. ERIVEDGE [Suspect]
     Active Substance: VISMODEGIB
     Indication: BASAL CELL CARCINOMA
     Dosage: STOPPED IN 2015 AND STARTED BACK 7/JAN/2020
     Route: 048
     Dates: start: 201106

REACTIONS (3)
  - Weight decreased [Unknown]
  - Therapeutic product effect decreased [Unknown]
  - Musculoskeletal disorder [Not Recovered/Not Resolved]

NARRATIVE: CASE EVENT DATE: 2015
